FAERS Safety Report 8539811-X (Version None)
Quarter: 2012Q3

REPORT INFORMATION
  Report Type: 
  Country: None (occurrence: None)
  Receive Date: 20120726
  Receipt Date: 20120724
  Transmission Date: 20120928
  Serious: Yes (Hospitalization, Other)
  Sender: FDA-Public Use
  Company Number: US-PFIZER INC-2012160622

PATIENT
  Sex: Female
  Weight: 48.98 kg

DRUGS (7)
  1. LYRICA [Suspect]
     Dosage: 120 MG, DAILY
     Route: 048
  2. PREVACID [Concomitant]
     Dosage: UNK
  3. VITAMIN D [Concomitant]
     Dosage: UNK
  4. TRAMADOL [Concomitant]
     Dosage: UNK
  5. LYRICA [Suspect]
     Indication: FIBROMYALGIA
     Dosage: 75 MG, 2X/DAY
     Route: 048
     Dates: start: 20080101
  6. LYRICA [Suspect]
     Dosage: 75 MG, 2X/DAY
     Route: 048
     Dates: end: 20120704
  7. PREDNISONE TAB [Suspect]
     Dosage: 10 MG, DAILY

REACTIONS (10)
  - GASTRIC HAEMORRHAGE [None]
  - PALPITATIONS [None]
  - BRADYPHRENIA [None]
  - GINGIVAL SWELLING [None]
  - INSOMNIA [None]
  - BLOOD GLUCOSE DECREASED [None]
  - HYPOTENSION [None]
  - WEIGHT DECREASED [None]
  - MENINGITIS [None]
  - ABDOMINAL DISCOMFORT [None]
